FAERS Safety Report 24978262 (Version 1)
Quarter: 2025Q1

REPORT INFORMATION
  Report Type: Report from Study
  Country: US (occurrence: US)
  Receive Date: 20250217
  Receipt Date: 20250217
  Transmission Date: 20250409
  Serious: Yes (Other)
  Sender: OTSUKA
  Company Number: US-OTSUKA-2024_032101

PATIENT
  Sex: Female

DRUGS (1)
  1. BREXPIPRAZOLE [Suspect]
     Active Substance: BREXPIPRAZOLE
     Indication: Major depression
     Route: 065

REACTIONS (5)
  - Suicide threat [Unknown]
  - Aggression [Unknown]
  - Product use issue [Unknown]
  - Product dose omission issue [Unknown]
  - Inability to afford medication [Unknown]
